FAERS Safety Report 10956216 (Version 1)
Quarter: 2015Q1

REPORT INFORMATION
  Report Type: Spontaneous
  Country: US (occurrence: US)
  Receive Date: 20150326
  Receipt Date: 20150326
  Transmission Date: 20150721
  Serious: No
  Sender: FDA-Public Use
  Company Number: US-MYLANLABS-2014S1006772

PATIENT
  Age: 3 Year
  Sex: Female

DRUGS (5)
  1. ALBUTEROL SULFATE SOLUTION FOR INHALATION [Suspect]
     Active Substance: ALBUTEROL SULFATE
     Dosage: .083 %,Q4H
     Route: 055
     Dates: start: 201310
  2. ANTIBIOTICS [Concomitant]
     Active Substance: UNSPECIFIED INGREDIENT
     Dosage: UNK
     Dates: start: 20140323
  3. ALBUTEROL SULFATE SOLUTION FOR INHALATION [Suspect]
     Active Substance: ALBUTEROL SULFATE
     Indication: BRONCHITIS
  4. COUGH SYRUP [Concomitant]
     Active Substance: DEXTROMETHORPHAN HYDROBROMIDE\GUAIFENESIN
     Dosage: UNK
     Dates: start: 201403
  5. ALBUTEROL SULFATE SOLUTION FOR INHALATION [Suspect]
     Active Substance: ALBUTEROL SULFATE
     Indication: BRONCHOSPASM

REACTIONS (2)
  - No adverse event [Recovered/Resolved]
  - Incorrect route of drug administration [Recovered/Resolved]

NARRATIVE: CASE EVENT DATE: 20140323
